FAERS Safety Report 4582295-7 (Version None)
Quarter: 2005Q1

REPORT INFORMATION
  Report Type: 
  Country: None (occurrence: None)
  Receive Date: 20050214
  Receipt Date: 20050131
  Transmission Date: 20050727
  Serious: Yes (Other)
  Sender: FDA-Public Use
  Company Number: HQWYE035802FEB05

PATIENT
  Sex: Female

DRUGS (1)
  1. ENBREL [Suspect]
     Indication: DRUG USE FOR UNKNOWN INDICATION
     Dosage: UNKNOWN
     Dates: start: 20021203

REACTIONS (3)
  - DYSPNOEA [None]
  - INFECTION IN AN IMMUNOCOMPROMISED HOST [None]
  - REPRODUCTIVE TRACT DISORDER [None]
